APPROVED DRUG PRODUCT: PAPA-DEINE #4
Active Ingredient: ACETAMINOPHEN; CODEINE PHOSPHATE
Strength: 300MG;60MG
Dosage Form/Route: TABLET;ORAL
Application: A088715 | Product #001
Applicant: VANGARD LABORATORIES INC DIV MIDWAY MEDICAL CO
Approved: Mar 20, 1984 | RLD: No | RS: No | Type: DISCN